FAERS Safety Report 16434618 (Version 2)
Quarter: 2019Q2

REPORT INFORMATION
  Report Type: Spontaneous
  Country: US (occurrence: US)
  Receive Date: 20190614
  Receipt Date: 20190628
  Transmission Date: 20190711
  Serious: No
  Sender: FDA-Public Use
  Company Number: US-SHIRE-US201919316

PATIENT

DRUGS (3)
  1. XIIDRA [Suspect]
     Active Substance: LIFITEGRAST
     Indication: PRODUCT USED FOR UNKNOWN INDICATION
     Dosage: UNK, ONE VIAL EVERY MORNING AND EVENING, 12 HOURS APART
     Route: 047
     Dates: start: 20190606
  2. RESTASIS [Concomitant]
     Active Substance: CYCLOSPORINE
     Indication: PRODUCT USED FOR UNKNOWN INDICATION
  3. XIIDRA [Suspect]
     Active Substance: LIFITEGRAST
     Dosage: UNK
     Route: 047
     Dates: start: 20190606

REACTIONS (1)
  - Eye irritation [Recovering/Resolving]

NARRATIVE: CASE EVENT DATE: 20190606
